FAERS Safety Report 7299760-4 (Version None)
Quarter: 2011Q1

REPORT INFORMATION
  Report Type: 
  Country: None (occurrence: None)
  Receive Date: 20110209
  Receipt Date: 20110202
  Transmission Date: 20110831
  Serious: Yes (Death)
  Sender: FDA-Public Use
  Company Number: TRP_07542_2011

PATIENT
  Age: 60 Year
  Sex: Female

DRUGS (1)
  1. AMPHOTERICIN B [Suspect]
     Indication: ASPERGILLOSIS
     Dosage: 1 MG/KG PER DAY FROM UNKNOWN INTRAVENOUS (NOT OTHERWISE SPECIFIED)
     Route: 042

REACTIONS (12)
  - SKIN ULCER [None]
  - RED BLOOD CELL SEDIMENTATION RATE INCREASED [None]
  - SINUSITIS [None]
  - CHEST X-RAY ABNORMAL [None]
  - SKIN MASS [None]
  - RASH PAPULAR [None]
  - C-REACTIVE PROTEIN INCREASED [None]
  - DYSPNOEA [None]
  - CELLULITIS ORBITAL [None]
  - ASPERGILLOSIS [None]
  - BLOOD GLUCOSE INCREASED [None]
  - SKIN NECROSIS [None]
